FAERS Safety Report 11201564 (Version 1)
Quarter: 2015Q2

REPORT INFORMATION
  Report Type: Spontaneous
  Country: US (occurrence: None)
  Receive Date: 20150617
  Receipt Date: 20150617
  Transmission Date: 20150821
  Serious: Yes (Hospitalization)
  Sender: FDA-Public Use
  Company Number: None

PATIENT
  Age: 61 Year
  Sex: Male
  Weight: 65.5 kg

DRUGS (1)
  1. HYDROCHLOROTHIAZIDE. [Suspect]
     Active Substance: HYDROCHLOROTHIAZIDE
     Indication: HYPERTENSION
     Route: 048
     Dates: start: 20150605, end: 20150608

REACTIONS (10)
  - Aspartate aminotransferase increased [None]
  - Blood creatine phosphokinase increased [None]
  - Alanine aminotransferase increased [None]
  - Vision blurred [None]
  - Myalgia [None]
  - Electrolyte imbalance [None]
  - Hypokalaemia [None]
  - Hypertension [None]
  - Blood urea increased [None]
  - Blood creatinine increased [None]

NARRATIVE: CASE EVENT DATE: 20150608
